FAERS Safety Report 18425322 (Version 1)
Quarter: 2020Q4

REPORT INFORMATION
  Report Type: Spontaneous
  Country: US (occurrence: US)
  Receive Date: 20201023
  Receipt Date: 20201023
  Transmission Date: 20210114
  Serious: Yes (Hospitalization, Other)
  Sender: FDA-Public Use
  Company Number: None

PATIENT
  Age: 36 Year
  Sex: Female
  Weight: 112.5 kg

DRUGS (1)
  1. INVEGA SUSTENNA [Suspect]
     Active Substance: PALIPERIDONE PALMITATE
     Indication: BIPOLAR DISORDER
     Route: 030
     Dates: start: 20190923, end: 20200601

REACTIONS (9)
  - Blood cholesterol increased [None]
  - Poor personal hygiene [None]
  - Glucose tolerance impaired [None]
  - Blood glucose increased [None]
  - Cognitive disorder [None]
  - Asthenia [None]
  - Lethargy [None]
  - Apathy [None]
  - Weight increased [None]

NARRATIVE: CASE EVENT DATE: 20190925
